FAERS Safety Report 24068281 (Version 1)
Quarter: 2024Q3

REPORT INFORMATION
  Report Type: Report from Study
  Country: ID (occurrence: ID)
  Receive Date: 20240710
  Receipt Date: 20240710
  Transmission Date: 20241017
  Serious: No
  Sender: ROCHE
  Company Number: ID-ROCHE-3446106

PATIENT
  Age: 76 Year
  Sex: Female

DRUGS (3)
  1. VABYSMO [Suspect]
     Active Substance: FARICIMAB\FARICIMAB-SVOA
     Indication: Polypoidal choroidal vasculopathy
     Route: 065
     Dates: start: 20230718
  2. AFLIBERCEPT [Concomitant]
     Active Substance: AFLIBERCEPT
  3. RANIBIZUMAB [Concomitant]
     Active Substance: RANIBIZUMAB

REACTIONS (1)
  - Visual acuity reduced [Unknown]
